FAERS Safety Report 6220741-3 (Version None)
Quarter: 2009Q2

REPORT INFORMATION
  Report Type: 
  Country: None (occurrence: None)
  Receive Date: 20090610
  Receipt Date: 20090602
  Transmission Date: 20091009
  Serious: Yes (Other)
  Sender: FDA-Public Use
  Company Number: PHHY2009BR18764

PATIENT
  Age: 7 Year
  Sex: Male
  Weight: 23 kg

DRUGS (1)
  1. TEGRETOL [Suspect]
     Indication: EPILEPSY
     Dosage: 7 ML, BID: MORNING AND NIGHT
     Route: 048

REACTIONS (19)
  - ABDOMINAL DISTENSION [None]
  - ABDOMINAL PAIN [None]
  - ANAEMIA [None]
  - ANOREXIA [None]
  - ARTHROPOD BITE [None]
  - AURICULAR SWELLING [None]
  - BLISTER [None]
  - CHROMATURIA [None]
  - DENGUE FEVER [None]
  - HEADACHE [None]
  - MOUTH ULCERATION [None]
  - NECK PAIN [None]
  - OROPHARYNGEAL PAIN [None]
  - PALLOR [None]
  - PYREXIA [None]
  - RASH MACULAR [None]
  - SWELLING [None]
  - TONGUE DISORDER [None]
  - VOMITING [None]
